FAERS Safety Report 5255824-8 (Version None)
Quarter: 2007Q1

REPORT INFORMATION
  Report Type: 
  Country: None (occurrence: None)
  Receive Date: 20070301
  Receipt Date: 20070217
  Transmission Date: 20070707
  Serious: Yes (Death, Hospitalization, Other)
  Sender: FDA-Public Use
  Company Number: 2005-02477

PATIENT
  Age: 64 Year
  Sex: Male
  Weight: 68 kg

DRUGS (12)
  1. VELCADE [Suspect]
     Indication: MULTIPLE MYELOMA
     Dosage: 2.30 MG, UNK, INTRAVENOUS
     Route: 042
     Dates: start: 20050928, end: 20051009
  2. ALLOPURINOL [Concomitant]
  3. OXYCONTIN (OXYCODONE HYDROCHLORIDE) TABLET, 20MG [Concomitant]
  4. ALOSENN (TARAXACUM OFFICINALE, ACHILLEA, SENNA LEAF, RUBIA ROOT TINCTU [Concomitant]
  5. FOSAMAX (ALENDRONATE SODIUM) TABLET, 5 MG [Concomitant]
  6. PREDNISOLONE (PREDNISOLONE) TABLET, 20 MG [Concomitant]
  7. BAKTAR (SULFAMETHOXAZOLE, TRIMETHOPRIM) TABLET [Concomitant]
  8. ATARAX-P (HYDROXYZINE HYDROCHLORIDE) TABLET, 25 MG [Concomitant]
  9. PARIET (RABEPRAZOLE SODIUM) TABLET, 20 MG [Concomitant]
  10. MUCOSTA (REBAMIPIDE) TABLET, 300 MG [Concomitant]
  11. PURSENNID (SENNA LEAF) TABLET, 2 MG [Concomitant]
  12. POLARAMINE (DEXCHLORPHENIRAMINE MALEATE) TABLET, 2 MG [Concomitant]

REACTIONS (6)
  - CRYPTOGENIC ORGANISING PNEUMONIA [None]
  - HAEMATOCRIT DECREASED [None]
  - HAEMOGLOBIN DECREASED [None]
  - LUNG DISORDER [None]
  - PLATELET COUNT DECREASED [None]
  - SEPSIS [None]
